FAERS Safety Report 13188312 (Version 4)
Quarter: 2017Q1

REPORT INFORMATION
  Report Type: Report from Study
  Country: CA (occurrence: CA)
  Receive Date: 20170206
  Receipt Date: 20170309
  Transmission Date: 20170428
  Serious: Yes (Hospitalization)
  Sender: FDA-Public Use
  Company Number: CA-BIOGEN-2017BI00351590

PATIENT
  Age: 67 Year
  Sex: Female

DRUGS (2)
  1. TECFIDERA [Suspect]
     Active Substance: DIMETHYL FUMARATE
     Indication: MULTIPLE SCLEROSIS
     Dosage: STARTING DOSE
     Route: 048
     Dates: start: 20170118, end: 20170124
  2. TECFIDERA [Suspect]
     Active Substance: DIMETHYL FUMARATE
     Dosage: MAINTENANCE DOSE
     Route: 048
     Dates: start: 20170125, end: 20170131

REACTIONS (5)
  - Drug intolerance [Unknown]
  - Musculoskeletal disorder [Unknown]
  - Urinary tract infection [Unknown]
  - Dysstasia [Unknown]
  - Liver disorder [Unknown]

NARRATIVE: CASE EVENT DATE: 2017
